FAERS Safety Report 23783301 (Version 1)
Quarter: 2024Q2

REPORT INFORMATION
  Report Type: Spontaneous
  Country: CN (occurrence: CN)
  Receive Date: 20240425
  Receipt Date: 20240425
  Transmission Date: 20240716
  Serious: Yes (Other)
  Sender: FDA-Public Use
  Company Number: CN-PFIZER INC-PV202400052910

PATIENT
  Age: 69 Year
  Sex: Male
  Weight: 60 kg

DRUGS (4)
  1. METHYLPREDNISOLONE SODIUM SUCCINATE [Suspect]
     Active Substance: METHYLPREDNISOLONE SODIUM SUCCINATE
     Indication: Inflammation
     Dosage: 40 MG, 1X/DAY
     Route: 041
     Dates: start: 20240322, end: 20240322
  2. DOXOFYLLINE [Suspect]
     Active Substance: DOXOFYLLINE
     Indication: Asthma
     Dosage: 0.2 G, 1X/DAY
     Route: 041
     Dates: start: 20240322, end: 20240322
  3. SODIUM CHLORIDE [Concomitant]
     Active Substance: SODIUM CHLORIDE
     Indication: Vehicle solution use
     Dosage: 100 ML, 1X/DAY
     Route: 041
     Dates: start: 20240322, end: 20240322
  4. STERILE WATER FOR INJECTION [Concomitant]
     Active Substance: WATER
     Indication: Vehicle solution use
     Dosage: 1 ML, 1X/DAY
     Route: 041
     Dates: start: 20240322, end: 20240322

REACTIONS (8)
  - Hypersensitivity [Recovering/Resolving]
  - Chills [Recovering/Resolving]
  - Hyperhidrosis [Recovering/Resolving]
  - Pruritus [Recovering/Resolving]
  - Vomiting [Recovering/Resolving]
  - Heart rate increased [Recovering/Resolving]
  - Blood pressure decreased [Recovering/Resolving]
  - Oxygen saturation decreased [Recovering/Resolving]

NARRATIVE: CASE EVENT DATE: 20240322
